FAERS Safety Report 11895814 (Version 1)
Quarter: 2016Q1

REPORT INFORMATION
  Report Type: Spontaneous
  Country: US (occurrence: None)
  Receive Date: 20160106
  Receipt Date: 20160106
  Transmission Date: 20160526
  Serious: No
  Sender: FDA-Public Use
  Company Number: None

PATIENT
  Sex: Male

DRUGS (2)
  1. LEVEMIR [Suspect]
     Active Substance: INSULIN DETEMIR
  2. NOVOLOG [Suspect]
     Active Substance: INSULIN ASPART

REACTIONS (3)
  - Inappropriate schedule of drug administration [None]
  - Wrong drug administered [None]
  - Incorrect dose administered [None]

NARRATIVE: CASE EVENT DATE: 2015
